FAERS Safety Report 15831714 (Version 1)
Quarter: 2019Q1

REPORT INFORMATION
  Report Type: Spontaneous
  Country: US (occurrence: US)
  Receive Date: 20190116
  Receipt Date: 20190116
  Transmission Date: 20190417
  Serious: No
  Sender: FDA-Public Use
  Company Number: US-HORIZON-ACT-0009-2019

PATIENT
  Age: 11 Year
  Sex: Male

DRUGS (5)
  1. EX-LAX REGULAR STRENGTH STIMULANT LAXATIVE [Concomitant]
     Active Substance: SENNOSIDES
  2. ACTIMMUNE [Suspect]
     Active Substance: INTERFERON GAMMA-1B
     Indication: NEUTROPHIL FUNCTION DISORDER
     Dosage: 0.2 ML TIW
     Route: 058
     Dates: start: 20131219
  3. SPORANOX [Concomitant]
     Active Substance: ITRACONAZOLE
  4. CEFAZOLIN [Concomitant]
     Active Substance: CEFAZOLIN
  5. SMZ [Concomitant]
     Active Substance: SULFAMETHOXAZOLE\TRIMETHOPRIM

REACTIONS (1)
  - Pyrexia [Unknown]
